FAERS Safety Report 7385149-6 (Version None)
Quarter: 2011Q1

REPORT INFORMATION
  Report Type: 
  Country: None (occurrence: None)
  Receive Date: 20110330
  Receipt Date: 20110323
  Transmission Date: 20110831
  Serious: Yes (Other)
  Sender: FDA-Public Use
  Company Number: NL-PFIZER INC-2011065116

PATIENT
  Age: 53 Year
  Sex: Female

DRUGS (2)
  1. PAROXETINE [Concomitant]
  2. CHAMPIX [Suspect]
     Dosage: UNK
     Dates: start: 20110126

REACTIONS (1)
  - AGORAPHOBIA [None]
